FAERS Safety Report 6361447-X (Version None)
Quarter: 2009Q3

REPORT INFORMATION
  Report Type: 
  Country: None (occurrence: None)
  Receive Date: 20090916
  Receipt Date: 20090916
  Transmission Date: 20100115
  Serious: No
  Sender: FDA-Public Use
  Company Number: None

PATIENT
  Sex: Female
  Weight: 64.8644 kg

DRUGS (1)
  1. AMLODIPINE BESYLATE [Suspect]
     Indication: HYPERTENSION
     Dosage: 2.5 MG 1 DAILY ORAL
     Route: 048
     Dates: start: 20080829, end: 20080929

REACTIONS (4)
  - DRUG INTOLERANCE [None]
  - FEELING ABNORMAL [None]
  - HEADACHE [None]
  - PRODUCT SUBSTITUTION ISSUE [None]
